FAERS Safety Report 8287653-5 (Version None)
Quarter: 2012Q2

REPORT INFORMATION
  Report Type: 
  Country: None (occurrence: None)
  Receive Date: 20120416
  Receipt Date: 20120411
  Transmission Date: 20120825
  Serious: Yes (Death, Hospitalization)
  Sender: FDA-Public Use
  Company Number: PHHY2012MX027915

PATIENT
  Sex: Male

DRUGS (2)
  1. THYROID [Concomitant]
     Dosage: UNK UKN, UNK
  2. STALEVO 100 [Suspect]
     Indication: PARKINSON'S DISEASE
     Dosage: 200MG/100MG/25 MG, ONE TABLET DAILY
     Route: 048
     Dates: start: 20090507, end: 20111128

REACTIONS (3)
  - CEREBROVASCULAR ACCIDENT [None]
  - INCOHERENT [None]
  - FALL [None]
